FAERS Safety Report 5035936-4 (Version None)
Quarter: 2006Q2

REPORT INFORMATION
  Report Type: 
  Country: None (occurrence: None)
  Receive Date: 20060526
  Receipt Date: 20060327
  Transmission Date: 20061013
  Serious: No
  Sender: FDA-Public Use
  Company Number: 223462

PATIENT
  Sex: Female

DRUGS (1)
  1. RAPTIVA [Suspect]
     Indication: DRUG USE FOR UNKNOWN INDICATION
     Dates: start: 20060318

REACTIONS (5)
  - CHILLS [None]
  - HEADACHE [None]
  - MYALGIA [None]
  - PHOTOSENSITIVITY REACTION [None]
  - VOMITING [None]
